FAERS Safety Report 13668146 (Version 1)
Quarter: 2017Q2

REPORT INFORMATION
  Report Type: Spontaneous
  Country: US (occurrence: US)
  Receive Date: 20170620
  Receipt Date: 20170620
  Transmission Date: 20170830
  Serious: No
  Sender: FDA-Public Use
  Company Number: US-PFIZER INC-2017268791

PATIENT
  Age: 58 Year
  Sex: Female
  Weight: 68.4 kg

DRUGS (1)
  1. EUCRISA [Suspect]
     Active Substance: CRISABOROLE
     Indication: ECZEMA
     Dosage: 2 PERCENT, APPLY TO AFFECTED AREA TWICE DAILY
     Dates: start: 201705

REACTIONS (2)
  - Erythema [Unknown]
  - Application site pain [Unknown]

NARRATIVE: CASE EVENT DATE: 201705
